FAERS Safety Report 7512858-8 (Version None)
Quarter: 2011Q2

REPORT INFORMATION
  Report Type: 
  Country: None (occurrence: None)
  Receive Date: 20110531
  Receipt Date: 20101230
  Transmission Date: 20111010
  Serious: Yes (Hospitalization)
  Sender: FDA-Public Use
  Company Number: FR-BAYER-2011-019473

PATIENT
  Age: 59 Year
  Sex: Female

DRUGS (4)
  1. SORAFENIB [Suspect]
     Dosage: UNK
     Route: 048
     Dates: start: 20090410
  2. SORAFENIB [Suspect]
     Indication: RENAL CANCER METASTATIC
     Dosage: BID
     Route: 048
     Dates: start: 20071213, end: 20090328
  3. BLINDED SORAFENIB (RAF KINASE INHIBITOR) [Suspect]
     Dosage: UNK
     Route: 042
     Dates: start: 20090406
  4. BLINDED SORAFENIB (RAF KINASE INHIBITOR) [Suspect]
     Indication: RENAL CANCER METASTATIC
     Dosage: QWK
     Route: 042
     Dates: start: 20071213, end: 20090316

REACTIONS (1)
  - VASCULAR NEOPLASM [None]
